FAERS Safety Report 8425476-4 (Version None)
Quarter: 2012Q2

REPORT INFORMATION
  Report Type: 
  Country: None (occurrence: None)
  Receive Date: 20120604
  Receipt Date: 20120524
  Transmission Date: 20120825
  Serious: Yes (Other)
  Sender: FDA-Public Use
  Company Number: 2012FR0183

PATIENT
  Age: 14 Year
  Sex: Male

DRUGS (2)
  1. KINERET [Suspect]
     Indication: MUCKLE-WELLS SYNDROME
     Dosage: 2 MG/KG (2 MG/KG, 1 IN 1 D)
     Route: 058
     Dates: start: 20080201, end: 20100701
  2. ILARIS [Suspect]
     Indication: MUCKLE-WELLS SYNDROME
     Dates: start: 20100701

REACTIONS (1)
  - CENTRAL NERVOUS SYSTEM LESION [None]
